FAERS Safety Report 22235471 (Version 1)
Quarter: 2023Q2

REPORT INFORMATION
  Report Type: Spontaneous
  Country: US (occurrence: US)
  Receive Date: 20230420
  Receipt Date: 20230420
  Transmission Date: 20230722
  Serious: Yes (Other)
  Sender: FDA-Public Use
  Company Number: US-BRISTOL-MYERS SQUIBB COMPANY-2023-055599

PATIENT
  Age: 71 Year
  Sex: Female

DRUGS (1)
  1. KENALOG [Suspect]
     Active Substance: TRIAMCINOLONE ACETONIDE
     Indication: Spinal stenosis
     Dosage: TRANSFORAMINAL
     Route: 008

REACTIONS (3)
  - Glucocorticoid deficiency [Unknown]
  - Erythema [Unknown]
  - Off label use [Unknown]
